FAERS Safety Report 5362736-8 (Version None)
Quarter: 2007Q2

REPORT INFORMATION
  Report Type: 
  Country: None (occurrence: None)
  Receive Date: 20070530
  Receipt Date: 20070322
  Transmission Date: 20071010
  Serious: No
  Sender: FDA-Public Use
  Company Number: 2007PV032170

PATIENT
  Age: 74 Year
  Sex: Male
  Weight: 104.3273 kg

DRUGS (5)
  1. BYETTA [Suspect]
     Indication: DIABETES MELLITUS NON-INSULIN-DEPENDENT
     Dosage: 10;5 MCG;SC
     Route: 058
     Dates: start: 20050101, end: 20050101
  2. BYETTA [Suspect]
     Indication: DIABETES MELLITUS NON-INSULIN-DEPENDENT
     Dosage: 10;5 MCG;SC
     Route: 058
     Dates: start: 20050101, end: 20050101
  3. METFORMIN HCL [Concomitant]
  4. MESTINON [Concomitant]
  5. UNKNOWN MEDICATION [Concomitant]

REACTIONS (4)
  - DECREASED APPETITE [None]
  - DEPRESSION [None]
  - DRUG EFFECT DECREASED [None]
  - WEIGHT DECREASED [None]
